FAERS Safety Report 5366066-X (Version None)
Quarter: 2007Q2

REPORT INFORMATION
  Report Type: 
  Country: None (occurrence: None)
  Receive Date: 20070620
  Receipt Date: 20070608
  Transmission Date: 20071010
  Serious: Yes (Other)
  Sender: FDA-Public Use
  Company Number: 2007US001351

PATIENT
  Sex: Female

DRUGS (5)
  1. PROGRAF(TACROLIMUS) CAPSULES [Suspect]
     Indication: LIVER TRANSPLANT REJECTION
     Dosage: 3-5 MG BID UNK
  2. PREDNISONE TAB [Concomitant]
  3. CELLCEPT [Concomitant]
  4. SILDENAFIL CITRATE [Concomitant]
  5. VENTAVIS [Concomitant]

REACTIONS (2)
  - LIVER TRANSPLANT [None]
  - PULMONARY HYPERTENSION [None]
